FAERS Safety Report 7602056-1 (Version None)
Quarter: 2011Q3

REPORT INFORMATION
  Report Type: 
  Country: None (occurrence: None)
  Receive Date: 20110711
  Receipt Date: 20110707
  Transmission Date: 20111222
  Serious: Yes (Hospitalization)
  Sender: FDA-Public Use
  Company Number: CHPA2011EC08942

PATIENT
  Age: 20 Year
  Sex: Female

DRUGS (2)
  1. EXCEDRIN (MIGRAINE) [Suspect]
     Indication: HEADACHE
     Dosage: 15 DF, ONCE/SINGLE
     Route: 048
     Dates: start: 20110705, end: 20110705
  2. TOPAMAX [Suspect]
     Indication: EPILEPSY
     Dosage: 1 DF, ONCE/SINGLE
     Route: 048
     Dates: start: 20110705, end: 20110705

REACTIONS (2)
  - INTENTIONAL OVERDOSE [None]
  - NO ADVERSE EVENT [None]
